FAERS Safety Report 10680562 (Version 1)
Quarter: 2014Q4

REPORT INFORMATION
  Report Type: Spontaneous
  Country: US (occurrence: US)
  Receive Date: 20141229
  Receipt Date: 20141229
  Transmission Date: 20150529
  Serious: No
  Sender: FDA-Public Use
  Company Number: US-SA-2014SA038516

PATIENT
  Sex: Male

DRUGS (2)
  1. ZOCOR [Concomitant]
     Active Substance: SIMVASTATIN
  2. PLAVIX [Suspect]
     Active Substance: CLOPIDOGREL BISULFATE
     Indication: CEREBROVASCULAR ACCIDENT
     Route: 065
     Dates: start: 2014

REACTIONS (3)
  - Blood bilirubin decreased [Not Recovered/Not Resolved]
  - Rash [Not Recovered/Not Resolved]
  - Jaundice [Recovering/Resolving]
